FAERS Safety Report 9206218 (Version 1)
Quarter: 2013Q2

REPORT INFORMATION
  Report Type: Spontaneous
  Country: US (occurrence: None)
  Receive Date: 20130401
  Receipt Date: 20130401
  Transmission Date: 20140414
  Serious: Yes (Other)
  Sender: FDA-Public Use
  Company Number: 2013-033952

PATIENT
  Age: 76 Year
  Sex: Female

DRUGS (1)
  1. AFLIBERCEPT (AFLIBERCEPT) SOLUTION FOR INJECTION [Suspect]
     Dates: start: 20121217

REACTIONS (5)
  - Lacrimation increased [None]
  - Asthenopia [None]
  - Abnormal sensation in eye [None]
  - Drug ineffective [None]
  - Photopsia [None]
